FAERS Safety Report 9189730 (Version 1)
Quarter: 2013Q1

REPORT INFORMATION
  Report Type: Spontaneous
  Country: CA (occurrence: None)
  Receive Date: 20130322
  Receipt Date: 20130322
  Transmission Date: 20140127
  Serious: Yes (Hospitalization)
  Sender: FDA-Public Use
  Company Number: 2523595-2013-00014

PATIENT
  Age: 59 Year
  Sex: Female
  Weight: 89 kg

DRUGS (1)
  1. UVADEX [Suspect]
     Indication: CHRONIC GRAFT VERSUS HOST DISEASE
     Dates: start: 20130308

REACTIONS (2)
  - Epistaxis [None]
  - Post procedural complication [None]
